APPROVED DRUG PRODUCT: LOMAIRA
Active Ingredient: PHENTERMINE HYDROCHLORIDE
Strength: 8MG
Dosage Form/Route: TABLET;ORAL
Application: A203495 | Product #001 | TE Code: AA
Applicant: AVANTHI INC
Approved: Sep 12, 2016 | RLD: No | RS: Yes | Type: RX